FAERS Safety Report 7674914-3 (Version None)
Quarter: 2011Q3

REPORT INFORMATION
  Report Type: 
  Country: None (occurrence: None)
  Receive Date: 20110810
  Receipt Date: 20110727
  Transmission Date: 20111222
  Serious: Yes (Other)
  Sender: FDA-Public Use
  Company Number: CH-ELI_LILLY_AND_COMPANY-CH201107007641

PATIENT
  Age: 23 Year
  Sex: Female
  Weight: 51 kg

DRUGS (6)
  1. CYMBALTA [Suspect]
     Dosage: 30 MG, UNK
     Route: 048
  2. CYMBALTA [Suspect]
     Dosage: 60 MG, QD
     Route: 048
     Dates: start: 20110401, end: 20110501
  3. CYMBALTA [Suspect]
     Dosage: 30 MG, QD
     Route: 048
     Dates: start: 20110501, end: 20110620
  4. TRAZODONE HCL [Concomitant]
     Dosage: 150 MG, QD
     Route: 048
  5. CYMBALTA [Suspect]
     Dosage: 90 MG, QD
     Route: 048
     Dates: start: 20110301, end: 20110401
  6. CYMBALTA [Suspect]
     Indication: DEPRESSION
     Dosage: 120 MG, QD
     Route: 048
     Dates: start: 20080101, end: 20110301

REACTIONS (6)
  - DRUG WITHDRAWAL SYNDROME [None]
  - CHILLS [None]
  - FEELING OF BODY TEMPERATURE CHANGE [None]
  - NAUSEA [None]
  - HYPERHIDROSIS [None]
  - TREMOR [None]
